FAERS Safety Report 8193101-6 (Version None)
Quarter: 2012Q1

REPORT INFORMATION
  Report Type: 
  Country: None (occurrence: None)
  Receive Date: 20120308
  Receipt Date: 20120308
  Transmission Date: 20120608
  Serious: Yes (Disabling)
  Sender: FDA-Public Use
  Company Number: None

PATIENT
  Age: 40 Year
  Sex: Female
  Weight: 54.884 kg

DRUGS (1)
  1. BOTOX [Suspect]
     Dates: start: 20110831, end: 20110831

REACTIONS (3)
  - DERMAL CYST [None]
  - SKIN ATROPHY [None]
  - RASH [None]
